FAERS Safety Report 5198429-X (Version None)
Quarter: 2007Q1

REPORT INFORMATION
  Report Type: 
  Country: None (occurrence: None)
  Receive Date: 20070104
  Receipt Date: 20061227
  Transmission Date: 20070707
  Serious: Yes (Disabling)
  Sender: FDA-Public Use
  Company Number: 2006SE06417

PATIENT
  Age: 26670 Day
  Sex: Male
  Weight: 79 kg

DRUGS (2)
  1. BLOPRESS TABLETS 4 [Suspect]
     Indication: HYPERTENSION
     Route: 048
     Dates: start: 20061018, end: 20061101
  2. AMLODIPINE BESYLATE [Concomitant]
     Indication: HYPERTENSION
     Route: 048
     Dates: start: 20051005

REACTIONS (2)
  - SEDATION [None]
  - SOMNOLENCE [None]
